FAERS Safety Report 22185465 (Version 2)
Quarter: 2023Q2

REPORT INFORMATION
  Report Type: Spontaneous
  Country: US (occurrence: US)
  Receive Date: 20230407
  Receipt Date: 20230413
  Transmission Date: 20230721
  Serious: No
  Sender: FDA-Public Use
  Company Number: US-SA-SAC20230406000175

PATIENT
  Age: 67 Year
  Sex: Female

DRUGS (9)
  1. DUPIXENT [Suspect]
     Active Substance: DUPILUMAB
     Indication: Dermatitis atopic
     Dosage: 300 MG, QOW
     Route: 058
     Dates: start: 202301, end: 2023
  2. DUPIXENT [Suspect]
     Active Substance: DUPILUMAB
     Indication: Skin disorder
  3. DUPIXENT [Suspect]
     Active Substance: DUPILUMAB
     Indication: Swelling
  4. DUPIXENT [Suspect]
     Active Substance: DUPILUMAB
     Indication: Skin discolouration
  5. DUPIXENT [Suspect]
     Active Substance: DUPILUMAB
     Indication: Erythema
  6. DUPIXENT [Suspect]
     Active Substance: DUPILUMAB
     Indication: Rash
  7. DUPIXENT [Suspect]
     Active Substance: DUPILUMAB
     Indication: Pruritus
  8. DUPIXENT [Suspect]
     Active Substance: DUPILUMAB
     Indication: Skin mass
  9. VITAMINS NOS [Concomitant]
     Active Substance: VITAMINS
     Dosage: UNK

REACTIONS (5)
  - Injection site pain [Unknown]
  - Eye infection [Unknown]
  - Ocular hyperaemia [Unknown]
  - Accidental exposure to product [Unknown]
  - Product use in unapproved indication [Unknown]

NARRATIVE: CASE EVENT DATE: 20230101
